FAERS Safety Report 5644727-2 (Version None)
Quarter: 2008Q1

REPORT INFORMATION
  Report Type: 
  Country: None (occurrence: None)
  Receive Date: 20080229
  Receipt Date: 20070626
  Transmission Date: 20080703
  Serious: No
  Sender: FDA-Public Use
  Company Number: A0660226A

PATIENT
  Age: 66 Year
  Sex: Female

DRUGS (4)
  1. VALTREX [Suspect]
     Dosage: 1000MG THREE TIMES PER DAY
     Route: 048
     Dates: start: 20070622
  2. ADVIL [Concomitant]
  3. NEURONTIN [Concomitant]
  4. VYTORIN [Concomitant]

REACTIONS (1)
  - EYE IRRITATION [None]
